FAERS Safety Report 7083747-0 (Version None)
Quarter: 2010Q4

REPORT INFORMATION
  Report Type: 
  Country: None (occurrence: None)
  Receive Date: 20101104
  Receipt Date: 20101029
  Transmission Date: 20110411
  Serious: Yes (Hospitalization)
  Sender: FDA-Public Use
  Company Number: IT-MERCK-1011ITA00001

PATIENT
  Sex: Male

DRUGS (2)
  1. ZOLINZA [Suspect]
     Route: 048
     Dates: end: 20101001
  2. ZOLINZA [Suspect]
     Route: 048
     Dates: start: 20101001

REACTIONS (2)
  - PSEUDOMONAS INFECTION [None]
  - STAPHYLOCOCCAL INFECTION [None]
